FAERS Safety Report 14091275 (Version 1)
Quarter: 2017Q4

REPORT INFORMATION
  Report Type: Spontaneous
  Country: US (occurrence: US)
  Receive Date: 20171016
  Receipt Date: 20171016
  Transmission Date: 20180321
  Serious: No
  Sender: FDA-Public Use
  Company Number: US-ENDO PHARMACEUTICALS INC-2016SCPR015852

PATIENT
  Age: 55 Year
  Sex: Female

DRUGS (7)
  1. CHOLESTYRAMINE. [Suspect]
     Active Substance: CHOLESTYRAMINE
     Indication: BLOOD CHOLESTEROL ABNORMAL
     Dosage: 2 SCOOPS, EVERY MORNING
     Route: 048
     Dates: start: 20160903, end: 20160904
  2. CHOLESTYRAMINE. [Suspect]
     Active Substance: CHOLESTYRAMINE
     Dosage: 2 SCOOPS, EVERY MORNING
     Route: 048
     Dates: start: 2016, end: 2016
  3. AMERICAN GINSENG [Concomitant]
     Indication: IMMUNE ENHANCEMENT THERAPY
     Dosage: 1 DF, OD
     Route: 065
  4. VSL#3 [Concomitant]
     Active Substance: PROBIOTICS NOS
     Indication: PROBIOTIC THERAPY
     Dosage: 1 DF, IN THE MORNING
     Route: 048
  5. EXTRA C [Concomitant]
     Indication: VITAMIN SUPPLEMENTATION
     Dosage: 1 DF, OD
     Route: 048
  6. CHOLESTYRAMINE. [Suspect]
     Active Substance: CHOLESTYRAMINE
     Dosage: 2 SCOOPS, EVERY MORNING
     Route: 048
  7. VITAMIN B12 [Concomitant]
     Active Substance: CYANOCOBALAMIN
     Indication: VITAMIN SUPPLEMENTATION
     Dosage: 1 DF, MONTHLY
     Route: 065

REACTIONS (3)
  - Product taste abnormal [Unknown]
  - Pollakiuria [Unknown]
  - Product odour abnormal [Unknown]

NARRATIVE: CASE EVENT DATE: 201609
